FAERS Safety Report 22960152 (Version 2)
Quarter: 2023Q4

REPORT INFORMATION
  Report Type: Spontaneous
  Country: US (occurrence: US)
  Receive Date: 20230920
  Receipt Date: 20231102
  Transmission Date: 20240110
  Serious: No
  Sender: FDA-Public Use
  Company Number: US-BRISTOL-MYERS SQUIBB COMPANY-2023-132895

PATIENT
  Age: 78 Year
  Sex: Male
  Weight: 84.82 kg

DRUGS (1)
  1. LENALIDOMIDE [Suspect]
     Active Substance: LENALIDOMIDE
     Indication: Plasma cell myeloma
     Route: 048
     Dates: start: 20230907, end: 20231030

REACTIONS (3)
  - Fatigue [Unknown]
  - Fall [Unknown]
  - Off label use [Unknown]
